FAERS Safety Report 4645838-0 (Version None)
Quarter: 2005Q2

REPORT INFORMATION
  Report Type: 
  Country: None (occurrence: None)
  Receive Date: 20050422
  Receipt Date: 20050422
  Transmission Date: 20051028
  Serious: Yes (Hospitalization)
  Sender: FDA-Public Use
  Company Number: None

PATIENT
  Age: 51 Year
  Sex: Male
  Weight: 90.7194 kg

DRUGS (2)
  1. WARFARIN  5 MG [Suspect]
     Indication: AORTIC VALVE REPLACEMENT
     Dosage: 7.5 MG DAILY ORAL
     Route: 048
     Dates: start: 20041015, end: 20050421
  2. WARFARIN  5 MG [Suspect]
     Indication: MITRAL VALVE REPLACEMENT
     Dosage: 7.5 MG DAILY ORAL
     Route: 048
     Dates: start: 20041015, end: 20050421

REACTIONS (6)
  - ABDOMINAL PAIN [None]
  - ASTHENIA [None]
  - DRUG TOXICITY [None]
  - GASTROINTESTINAL HAEMORRHAGE [None]
  - INTERNATIONAL NORMALISED RATIO INCREASED [None]
  - PALLOR [None]
